FAERS Safety Report 9066957 (Version 1)
Quarter: 2013Q1

REPORT INFORMATION
  Report Type: Spontaneous
  Country: GB (occurrence: GB)
  Receive Date: 20130214
  Receipt Date: 20130214
  Transmission Date: 20140127
  Serious: Yes (Life-Threatening, Hospitalization)
  Sender: FDA-Public Use
  Company Number: PHHY2013GB010840

PATIENT
  Age: 63 Year
  Sex: Male

DRUGS (11)
  1. WARFARIN [Suspect]
     Route: 048
  2. ACETYLSALICYLIC ACID [Suspect]
     Dosage: 75 MG, QD
     Route: 048
  3. CLOPIDOGREL [Suspect]
     Dosage: 75 MG, QD
     Route: 048
  4. BISOPROLOL FUMARATE [Concomitant]
     Dosage: 10 MG, QD
     Route: 048
  5. DIGOXIN [Concomitant]
     Dosage: 125 UG, QD
     Route: 048
  6. EPLERENONE [Concomitant]
     Dosage: 25 MG, QD
     Route: 048
  7. FUROSEMIDE [Concomitant]
     Dosage: 40 MG, QD (IN THE MORNING)
     Route: 048
  8. GLYCERYL TRINITRATE [Concomitant]
     Indication: CHEST PAIN
     Route: 060
  9. NIQUITIN [Concomitant]
     Dosage: 1 DF, QD
     Route: 062
  10. SIMVASTATIN [Concomitant]
     Dosage: 40 MG, QD (AT NIGHT)
     Route: 048
  11. FERROUS SULPHATE [Concomitant]
     Dosage: 200 MG, TID
     Route: 048

REACTIONS (2)
  - International normalised ratio increased [Unknown]
  - Haemorrhage [Unknown]
